FAERS Safety Report 6656182-4 (Version None)
Quarter: 2010Q1

REPORT INFORMATION
  Report Type: 
  Country: None (occurrence: None)
  Receive Date: 20100326
  Receipt Date: 20100326
  Transmission Date: 20100710
  Serious: Yes (Other)
  Sender: FDA-Public Use
  Company Number: None

PATIENT
  Sex: Female

DRUGS (1)
  1. OXYCODONE HCL EXTENDED-RELEASE [Suspect]
     Indication: PAIN
     Dosage: 1 TABLET EVERY 8 HOURS PO
     Route: 048
     Dates: start: 20100312, end: 20100324

REACTIONS (6)
  - ABDOMINAL DISCOMFORT [None]
  - CHILLS [None]
  - DRUG WITHDRAWAL SYNDROME [None]
  - HYPERHIDROSIS [None]
  - IRRITABILITY [None]
  - PAIN [None]
